FAERS Safety Report 6204542-8 (Version None)
Quarter: 2009Q2

REPORT INFORMATION
  Report Type: 
  Country: None (occurrence: None)
  Receive Date: 20090522
  Receipt Date: 20090511
  Transmission Date: 20091009
  Serious: Yes (Hospitalization)
  Sender: FDA-Public Use
  Company Number: 234515K09USA

PATIENT
  Age: 73 Year
  Sex: Female
  Weight: 64 kg

DRUGS (14)
  1. REBIF [Suspect]
     Indication: MULTIPLE SCLEROSIS
     Dosage: 44 MCG, 3 IN 1 WEEKS, SUBCUTANEOUS
     Route: 058
     Dates: start: 20040514, end: 20090213
  2. KEPPRA [Concomitant]
  3. GABAPENTIN [Concomitant]
  4. METFORMIN HCL [Concomitant]
  5. LEVOTHYROXINE (LEVOTHYROXINE /00068001/) [Concomitant]
  6. PAROXETINE HCL [Concomitant]
  7. CRESTOR [Concomitant]
  8. NITROFURANTOIN [Concomitant]
  9. BONIVA [Concomitant]
  10. BACLOFEN [Concomitant]
  11. B-12 (CYANOCOBALAMIN) [Concomitant]
  12. VESICARE [Concomitant]
  13. TRICOR [Concomitant]
  14. BISACODYL (BISACODYL) [Concomitant]

REACTIONS (5)
  - DEPRESSION [None]
  - INJECTION SITE ERYTHEMA [None]
  - INJECTION SITE PAIN [None]
  - INJECTION SITE PRURITUS [None]
  - SYNCOPE [None]
